FAERS Safety Report 14210562 (Version 1)
Quarter: 2017Q4

REPORT INFORMATION
  Report Type: Spontaneous
  Country: US (occurrence: US)
  Receive Date: 20171121
  Receipt Date: 20171121
  Transmission Date: 20180321
  Serious: No
  Sender: FDA-Public Use
  Company Number: US-GLAXOSMITHKLINE-US2017GSK177547

PATIENT
  Sex: Female

DRUGS (1)
  1. ACYCLOVIR. [Suspect]
     Active Substance: ACYCLOVIR
     Indication: HERPES ZOSTER
     Dosage: DAILY

REACTIONS (5)
  - Herpes zoster [Unknown]
  - Pruritus [Unknown]
  - Post herpetic neuralgia [Unknown]
  - Blister rupture [Unknown]
  - Blister [Unknown]
